FAERS Safety Report 9567620 (Version 1)
Quarter: 2013Q3

REPORT INFORMATION
  Report Type: Spontaneous
  Country: US (occurrence: US)
  Receive Date: 20130930
  Receipt Date: 20130930
  Transmission Date: 20140515
  Serious: No
  Sender: FDA-Public Use
  Company Number: US-AMGEN-USASP2012082905

PATIENT
  Sex: Female
  Weight: 77.1 kg

DRUGS (13)
  1. ENBREL [Suspect]
     Indication: RHEUMATOID ARTHRITIS
     Dosage: 25 MG/ML, 2 TIMES/WK
     Route: 058
  2. PLAQUENIL                          /00072602/ [Concomitant]
     Dosage: UNK
  3. PREDNISONE [Concomitant]
     Dosage: UNK
  4. NAPROSYN                           /00256201/ [Concomitant]
     Dosage: 250 MG, UNK
  5. EFFEXOR [Concomitant]
     Dosage: 100 MG, UNK
  6. TOPAMAX [Concomitant]
     Dosage: 100 MG, UNK
  7. ATENOLOL [Concomitant]
     Dosage: 25 MG, UNK
  8. CLONAZEPAM [Concomitant]
     Dosage: 0.5 MG, UNK
  9. GABAPENTIN [Concomitant]
     Dosage: 100 MG, UNK
  10. CALCIUM [Concomitant]
     Dosage: 500 UNK, UNK
  11. RISPERIDONE [Concomitant]
     Dosage: 0.25 ODT
  12. OMEGA 3 6 9 [Concomitant]
     Dosage: UNK
  13. FLOVENT [Concomitant]
     Dosage: 110 MUG, UNK

REACTIONS (1)
  - Influenza like illness [Unknown]
